FAERS Safety Report 8305589-8 (Version None)
Quarter: 2012Q2

REPORT INFORMATION
  Report Type: 
  Country: None (occurrence: None)
  Receive Date: 20120418
  Receipt Date: 20120403
  Transmission Date: 20120825
  Serious: Yes (Other)
  Sender: FDA-Public Use
  Company Number: B0793755A

PATIENT
  Sex: Male

DRUGS (4)
  1. CLRPHN+DEXTRO+PARAC+PHNL CAPLET (CLRPHN+DEXTRO+PARAC+PHNL) [Suspect]
     Indication: INFLUENZA
     Dosage: ORAL
     Route: 048
     Dates: start: 20120401
  2. SOTALOL HCL [Suspect]
     Indication: PRODUCT USED FOR UNKNOWN INDICATION
  3. WARFARIN SODIUM [Suspect]
     Indication: PRODUCT USED FOR UNKNOWN INDICATION
  4. DIGOXIN [Suspect]
     Indication: PRODUCT USED FOR UNKNOWN INDICATION

REACTIONS (1)
  - ATRIAL FIBRILLATION [None]
